FAERS Safety Report 4513984-8 (Version None)
Quarter: 2004Q4

REPORT INFORMATION
  Report Type: 
  Country: None (occurrence: None)
  Receive Date: 20041130
  Receipt Date: 20041013
  Transmission Date: 20050328
  Serious: Yes (Other)
  Sender: FDA-Public Use
  Company Number: US-GLAXOSMITHKLINE-A0529693A

PATIENT
  Age: 19 Year
  Sex: Male
  Weight: 72.7 kg

DRUGS (2)
  1. WELLBUTRIN [Suspect]
     Indication: DEPRESSION
     Dosage: 450MG PER DAY
     Route: 048
     Dates: start: 20040721, end: 20040902
  2. TESTOSTERONE INJECTION [Concomitant]

REACTIONS (2)
  - GRAND MAL CONVULSION [None]
  - INSOMNIA [None]
